FAERS Safety Report 15615319 (Version 1)
Quarter: 2018Q4

REPORT INFORMATION
  Report Type: Spontaneous
  Country: US (occurrence: US)
  Receive Date: 20181114
  Receipt Date: 20181114
  Transmission Date: 20190205
  Serious: No
  Sender: FDA-Public Use
  Company Number: US-LUPIN PHARMACEUTICALS INC.-2017-06160

PATIENT
  Sex: Female

DRUGS (1)
  1. NORETHINDRONE TABLETS USP 0.35 MG [Suspect]
     Active Substance: NORETHINDRONE
     Indication: ORAL CONTRACEPTION
     Dosage: 0.35 MG, QD
     Route: 048
     Dates: start: 201510

REACTIONS (2)
  - No adverse event [Unknown]
  - Inappropriate schedule of product administration [Unknown]

NARRATIVE: CASE EVENT DATE: 20171010
